FAERS Safety Report 15764457 (Version 1)
Quarter: 2018Q4

REPORT INFORMATION
  Report Type: Spontaneous
  Country: US (occurrence: US)
  Receive Date: 20181226
  Receipt Date: 20181226
  Transmission Date: 20190205
  Serious: Yes (Hospitalization)
  Sender: FDA-Public Use
  Company Number: None

PATIENT
  Sex: Male

DRUGS (9)
  1. VITAMIN C 500MG [Concomitant]
  2. LUPRON DEPOT [Suspect]
     Active Substance: LEUPROLIDE ACETATE
     Indication: PROSTATE CANCER
     Dosage: ?          OTHER FREQUENCY:EVERY 90 DAYS;?
     Route: 030
     Dates: start: 20170203
  3. AMLODIPINE [Concomitant]
     Active Substance: AMLODIPINE BESYLATE
  4. VITAMIN D3 400UNIT [Concomitant]
  5. FUROSEMIDE 20MG [Concomitant]
     Active Substance: FUROSEMIDE
  6. CALCIUM 600 [Concomitant]
     Active Substance: CALCIUM
  7. ROSUVASTATIN 40MG [Concomitant]
     Active Substance: ROSUVASTATIN
  8. MAGNESIUM 400MG [Concomitant]
     Active Substance: MAGNESIUM
  9. POLYETHYLENE 400 [Concomitant]

REACTIONS (2)
  - Hip fracture [None]
  - Fall [None]
